FAERS Safety Report 9931020 (Version 1)
Quarter: 2014Q1

REPORT INFORMATION
  Report Type: Spontaneous
  Country: FR (occurrence: FR)
  Receive Date: 20140227
  Receipt Date: 20140227
  Transmission Date: 20141002
  Serious: Yes (Hospitalization)
  Sender: FDA-Public Use
  Company Number: FR-ASTRAZENECA-2014SE12954

PATIENT
  Age: 22129 Day
  Sex: Female

DRUGS (14)
  1. INEXIUM [Suspect]
     Route: 048
     Dates: end: 20131030
  2. LEVETIRACETAM MYLAN [Suspect]
     Route: 048
     Dates: start: 20131016, end: 20131104
  3. VANCOMYCIN MYLAN [Suspect]
     Route: 042
     Dates: start: 20131015, end: 20131029
  4. VANCOMYCIN MYLAN [Suspect]
     Dosage: SINGLE DOSE
     Route: 042
     Dates: start: 20131102, end: 20131102
  5. EUPRESSYL [Suspect]
     Route: 048
     Dates: start: 20131027, end: 20131103
  6. THIOCOLCHICOSIDE EG [Suspect]
     Route: 048
     Dates: start: 20131028, end: 20131031
  7. TAHOR [Suspect]
     Route: 048
     Dates: end: 20131030
  8. LOXEN [Concomitant]
     Route: 048
  9. CEFEPIME [Concomitant]
     Route: 048
     Dates: start: 20131015, end: 20131029
  10. PERFALGAN [Concomitant]
     Route: 048
  11. LOVENOX [Concomitant]
     Route: 058
  12. DIFFU K [Concomitant]
  13. CETIRIZINE [Concomitant]
  14. SOLUMEDROL [Concomitant]

REACTIONS (1)
  - Drug reaction with eosinophilia and systemic symptoms [Recovered/Resolved]
